FAERS Safety Report 5853690-0 (Version None)
Quarter: 2008Q3

REPORT INFORMATION
  Report Type: 
  Country: None (occurrence: None)
  Receive Date: 20080822
  Receipt Date: 20080815
  Transmission Date: 20090109
  Serious: Yes (Other)
  Sender: FDA-Public Use
  Company Number: TR-ASTRAZENECA-2008SE03797

PATIENT
  Sex: Female

DRUGS (6)
  1. NEXIUM [Suspect]
     Indication: PEPTIC ULCER
     Route: 048
  2. NEXIUM [Suspect]
     Indication: GASTROOESOPHAGEAL REFLUX DISEASE
     Route: 048
  3. NEXIUM [Suspect]
     Route: 048
  4. NEXIUM [Suspect]
     Route: 048
  5. INHIBACE [Concomitant]
     Indication: HYPERTENSION
  6. CA-D VIT [Concomitant]
     Indication: OSTEOPOROSIS

REACTIONS (5)
  - ANGINA PECTORIS [None]
  - ASTHENIA [None]
  - HYPERHIDROSIS [None]
  - HYPOTENSION [None]
  - TACHYCARDIA [None]
